FAERS Safety Report 4687190-0 (Version None)
Quarter: 2005Q2

REPORT INFORMATION
  Report Type: 
  Country: None (occurrence: None)
  Receive Date: 20050606
  Receipt Date: 20050524
  Transmission Date: 20051028
  Serious: Yes (Other)
  Sender: FDA-Public Use
  Company Number: 2005079562

PATIENT
  Age: 71 Year
  Sex: Female
  Weight: 71.6683 kg

DRUGS (13)
  1. CELEBREX [Suspect]
     Indication: RHEUMATOID ARTHRITIS
     Dosage: DAILY INTERVAL: EVERY DAY, ORAL
     Route: 048
     Dates: start: 20020101, end: 20040101
  2. ZAROXOYLN (METOLAZONE) [Concomitant]
  3. AMITRIPTYLINE [Concomitant]
  4. ARICEPT [Concomitant]
  5. EFFEXOR [Concomitant]
  6. FUROSEMIDE [Concomitant]
  7. KLONOPIN [Concomitant]
  8. ALL OTHER THERAPEUTIC PRODUCT [Concomitant]
  9. NORVASC [Concomitant]
  10. POTASSIUM CHLORIDE [Concomitant]
  11. PREVACID [Concomitant]
  12. QUININE [Concomitant]
  13. TRILEPTAL [Concomitant]

REACTIONS (3)
  - DRY SKIN [None]
  - RENAL IMPAIRMENT [None]
  - SKIN DISCOLOURATION [None]
